FAERS Safety Report 25149756 (Version 1)
Quarter: 2025Q2

REPORT INFORMATION
  Report Type: Spontaneous
  Country: US (occurrence: US)
  Receive Date: 20250402
  Receipt Date: 20250402
  Transmission Date: 20250716
  Serious: Yes (Hospitalization)
  Sender: MYLAN
  Company Number: US-MYLANLABS-2025M1028077

PATIENT
  Age: 64 Year
  Sex: Female

DRUGS (20)
  1. DOXAZOSIN [Suspect]
     Active Substance: DOXAZOSIN MESYLATE
     Indication: Product used for unknown indication
     Route: 065
  2. DOXAZOSIN [Suspect]
     Active Substance: DOXAZOSIN MESYLATE
  3. DOXAZOSIN [Suspect]
     Active Substance: DOXAZOSIN MESYLATE
  4. DOXAZOSIN [Suspect]
     Active Substance: DOXAZOSIN MESYLATE
     Route: 065
  5. DOXAZOSIN [Suspect]
     Active Substance: DOXAZOSIN MESYLATE
     Route: 065
  6. DOXAZOSIN [Suspect]
     Active Substance: DOXAZOSIN MESYLATE
  7. DOXAZOSIN [Suspect]
     Active Substance: DOXAZOSIN MESYLATE
  8. DOXAZOSIN [Suspect]
     Active Substance: DOXAZOSIN MESYLATE
     Route: 065
  9. AMIODARONE HYDROCHLORIDE [Suspect]
     Active Substance: AMIODARONE HYDROCHLORIDE
     Indication: Arrhythmic storm
  10. AMIODARONE HYDROCHLORIDE [Suspect]
     Active Substance: AMIODARONE HYDROCHLORIDE
     Route: 042
  11. AMIODARONE HYDROCHLORIDE [Suspect]
     Active Substance: AMIODARONE HYDROCHLORIDE
     Route: 042
  12. AMIODARONE HYDROCHLORIDE [Suspect]
     Active Substance: AMIODARONE HYDROCHLORIDE
  13. LIDOCAINE [Suspect]
     Active Substance: LIDOCAINE
     Indication: Arrhythmic storm
  14. LIDOCAINE [Suspect]
     Active Substance: LIDOCAINE
     Route: 065
  15. LIDOCAINE [Suspect]
     Active Substance: LIDOCAINE
     Route: 065
  16. LIDOCAINE [Suspect]
     Active Substance: LIDOCAINE
  17. METYROSINE [Concomitant]
     Active Substance: METYROSINE
     Indication: Product used for unknown indication
  18. METYROSINE [Concomitant]
     Active Substance: METYROSINE
     Route: 065
  19. METYROSINE [Concomitant]
     Active Substance: METYROSINE
     Route: 065
  20. METYROSINE [Concomitant]
     Active Substance: METYROSINE

REACTIONS (2)
  - Hypotension [Unknown]
  - Drug ineffective [Unknown]
